FAERS Safety Report 5290448-8 (Version None)
Quarter: 2007Q2

REPORT INFORMATION
  Report Type: 
  Country: None (occurrence: None)
  Receive Date: 20070409
  Receipt Date: 20070404
  Transmission Date: 20071010
  Serious: Yes (Hospitalization)
  Sender: FDA-Public Use
  Company Number: FR-BRISTOL-MYERS SQUIBB COMPANY-13740774

PATIENT
  Age: 79 Year
  Sex: Male

DRUGS (4)
  1. GLUCOPHAGE [Suspect]
     Indication: DIABETES MELLITUS NON-INSULIN-DEPENDENT
     Route: 048
     Dates: end: 20060723
  2. LASIX [Suspect]
     Route: 048
     Dates: end: 20060723
  3. LESCOL [Suspect]
     Route: 048
     Dates: end: 20060723
  4. ACARBOSE [Suspect]
     Route: 048
     Dates: end: 20060723

REACTIONS (3)
  - HYPERKALAEMIA [None]
  - HYPONATRAEMIA [None]
  - RENAL FAILURE ACUTE [None]
